FAERS Safety Report 7136132-7 (Version None)
Quarter: 2010Q4

REPORT INFORMATION
  Report Type: 
  Country: None (occurrence: None)
  Receive Date: 20101205
  Receipt Date: 20101124
  Transmission Date: 20110411
  Serious: Yes (Hospitalization)
  Sender: FDA-Public Use
  Company Number: CA-JNJFOC-20101006442

PATIENT
  Sex: Female
  Weight: 72.58 kg

DRUGS (15)
  1. STELARA [Suspect]
     Indication: PSORIASIS
     Route: 058
  2. COLD-FX [Suspect]
     Indication: MUSCULOSKELETAL DISCOMFORT
  3. NEURONTIN [Concomitant]
  4. CLONAZEPAM [Concomitant]
  5. VITAMIN D [Concomitant]
  6. CYMBALTA [Concomitant]
  7. INVEGA [Concomitant]
  8. CRESTOR [Concomitant]
  9. PREVACID [Concomitant]
  10. CELEBREX [Concomitant]
  11. SINGULAIR [Concomitant]
  12. SEROQUEL XR [Concomitant]
  13. CALTRATE [Concomitant]
  14. MATERNA [Concomitant]
  15. CORTEF [Concomitant]
     Indication: HYPOGLYCAEMIA

REACTIONS (3)
  - HYPOGLYCAEMIA [None]
  - RASH [None]
  - WEIGHT INCREASED [None]
